FAERS Safety Report 18637113 (Version 3)
Quarter: 2025Q2

REPORT INFORMATION
  Report Type: Report from Study
  Country: IT (occurrence: IT)
  Receive Date: 20201219
  Receipt Date: 20250629
  Transmission Date: 20250716
  Serious: Yes (Death, Other)
  Sender: AUROBINDO
  Company Number: IT-GLAXOSMITHKLINE-IT2020GSK234385

PATIENT
  Age: 1 Year
  Sex: Male

DRUGS (1)
  1. AMOXICILLIN\CLAVULANIC ACID [Suspect]
     Active Substance: AMOXICILLIN\CLAVULANIC ACID
     Indication: Feeding intolerance
     Dosage: 10 MILLIGRAM/KILOGRAM, TWO TIMES A DAY
     Route: 065

REACTIONS (4)
  - Death [Fatal]
  - Pulmonary haemorrhage [Unknown]
  - Concomitant disease aggravated [Unknown]
  - Off label use [Unknown]
